FAERS Safety Report 17573558 (Version 1)
Quarter: 2020Q1

REPORT INFORMATION
  Report Type: Spontaneous
  Country: US (occurrence: US)
  Receive Date: 20200323
  Receipt Date: 20200323
  Transmission Date: 20200409
  Serious: No
  Sender: FDA-Public Use
  Company Number: US-OCULAR THERAPEUTIX-2019OCX00035

PATIENT
  Sex: Female
  Weight: 90.25 kg

DRUGS (10)
  1. PRED FORTE [Concomitant]
     Active Substance: PREDNISOLONE ACETATE
     Dosage: 1 DROP, 2X/DAY LEFT EYE
     Route: 047
     Dates: start: 20191203, end: 20191209
  2. BROMFENAC [Concomitant]
     Active Substance: BROMFENAC SODIUM
     Dosage: 1 DROP, 3X/DAY LEFT EYE
     Route: 047
     Dates: start: 20191112, end: 20191118
  3. DEXTENZA [Suspect]
     Active Substance: DEXAMETHASONE
     Indication: CATARACT OPERATION
     Dosage: 0.4 MG, ONCE
     Dates: start: 20191112
  4. GATIFLOXACIN. [Concomitant]
     Active Substance: GATIFLOXACIN
     Dosage: 1 DROP, 3X/DAY LEFT EYE
     Route: 047
     Dates: start: 20191112, end: 20191118
  5. GATIFLOXACIN. [Concomitant]
     Active Substance: GATIFLOXACIN
     Dosage: 1 DROP, 2X/DAY LEFT EYE
     Route: 047
     Dates: start: 20191119, end: 20191202
  6. BROMFENAC [Concomitant]
     Active Substance: BROMFENAC SODIUM
     Dosage: 1 DROP, 1X/DAY LEFT EYE
     Route: 047
     Dates: start: 20191203, end: 20191209
  7. BROMFENAC [Concomitant]
     Active Substance: BROMFENAC SODIUM
     Dosage: 1 DROP, 2X/DAY LEFT EYE
     Route: 047
     Dates: start: 20191119, end: 20191202
  8. PRED FORTE [Concomitant]
     Active Substance: PREDNISOLONE ACETATE
     Dosage: 1 DROP, 2X/DAY LEFT EYE
     Route: 047
     Dates: start: 20191119, end: 20191202
  9. GATIFLOXACIN. [Concomitant]
     Active Substance: GATIFLOXACIN
     Dosage: 1 DROP, 1X/DAY LEFT EYE
     Route: 047
     Dates: start: 20191203, end: 20191209
  10. PRED FORTE [Concomitant]
     Active Substance: PREDNISOLONE ACETATE
     Dosage: 1 DROP, 3X/DAY LEFT EYE
     Route: 047
     Dates: start: 20191112, end: 20191118

REACTIONS (2)
  - Abnormal sensation in eye [Unknown]
  - Vitreous detachment [Recovered/Resolved]

NARRATIVE: CASE EVENT DATE: 2019
